FAERS Safety Report 10013889 (Version 3)
Quarter: 2014Q2

REPORT INFORMATION
  Report Type: Spontaneous
  Country: US (occurrence: US)
  Receive Date: 20140316
  Receipt Date: 20140523
  Transmission Date: 20141212
  Serious: Yes (Other)
  Sender: FDA-Public Use
  Company Number: US-LUNDBECK-DKLU1094842

PATIENT
  Age: 12 Year
  Sex: Female

DRUGS (5)
  1. ONFI [Suspect]
     Indication: EPILEPSY
     Dates: start: 20130329
  2. ONFI [Suspect]
     Dates: start: 20130313
  3. ONFI [Suspect]
  4. METHYLPHENIDATE [Suspect]
     Indication: PRODUCT USED FOR UNKNOWN INDICATION
  5. TRANXENE [Concomitant]
     Indication: PRODUCT USED FOR UNKNOWN INDICATION

REACTIONS (4)
  - Convulsion [Unknown]
  - Tongue biting [Unknown]
  - Enuresis [Unknown]
  - Drug dose omission [Unknown]
